FAERS Safety Report 5830740-9 (Version None)
Quarter: 2008Q3

REPORT INFORMATION
  Report Type: 
  Country: None (occurrence: None)
  Receive Date: 20080801
  Receipt Date: 20071101
  Transmission Date: 20090109
  Serious: No
  Sender: FDA-Public Use
  Company Number: US-BRISTOL-MYERS SQUIBB COMPANY-13966270

PATIENT
  Sex: Female
  Weight: 73 kg

DRUGS (3)
  1. COUMADIN [Suspect]
     Dosage: 1 DOSAGE FORM = 5MG/6 DAYS AND 7.5MG/1DAY
  2. TYLENOL W/ CODEINE [Concomitant]
  3. COLLOIDAL OATMEAL [Concomitant]

REACTIONS (6)
  - ASTHENIA [None]
  - FEELING HOT [None]
  - OEDEMA PERIPHERAL [None]
  - PAIN IN EXTREMITY [None]
  - PARAESTHESIA [None]
  - RASH [None]
